FAERS Safety Report 6285630-7 (Version None)
Quarter: 2009Q3

REPORT INFORMATION
  Report Type: 
  Country: None (occurrence: None)
  Receive Date: 20090724
  Receipt Date: 20090424
  Transmission Date: 20100115
  Serious: Yes (Other)
  Sender: FDA-Public Use
  Company Number: ADE# 09-355DPR

PATIENT
  Sex: Female

DRUGS (1)
  1. DIGOXIN         STRENGTH UNKNOWN [Suspect]

REACTIONS (2)
  - MULTIPLE INJURIES [None]
  - TOXIC SHOCK SYNDROME [None]
